FAERS Safety Report 15572895 (Version 3)
Quarter: 2018Q4

REPORT INFORMATION
  Report Type: Report from Study
  Country: None (occurrence: TR)
  Receive Date: 20181031
  Receipt Date: 20181121
  Transmission Date: 20190205
  Serious: Yes (Hospitalization)
  Sender: FDA-Public Use
  Company Number: TR-ABBVIE-18S-161-2534706-00

PATIENT
  Age: 70 Year
  Sex: Female
  Weight: 76 kg

DRUGS (8)
  1. LEVOTIRON [Concomitant]
     Active Substance: LEVOTHYROXINE SODIUM
     Indication: HYPOTHYROIDISM
     Route: 048
     Dates: start: 2013
  2. PK MERZ [Concomitant]
     Active Substance: AMANTADINE SULFATE
     Indication: PARKINSON^S DISEASE
     Route: 048
     Dates: start: 2014
  3. PANTO [Concomitant]
     Active Substance: PANTOPRAZOLE SODIUM
     Indication: PROPHYLAXIS
     Route: 048
     Dates: start: 2017
  4. TRIVESTAL [Concomitant]
     Indication: PARKINSON^S DISEASE
     Route: 048
     Dates: start: 2014
  5. MADOPAR HBS [Concomitant]
     Active Substance: BENSERAZIDE HYDROCHLORIDE\LEVODOPA
     Indication: PARKINSON^S DISEASE
     Route: 048
     Dates: start: 20181016
  6. DUODOPA [Suspect]
     Active Substance: CARBIDOPA\LEVODOPA
     Indication: PARKINSON^S DISEASE
     Dosage: MD: 6.00 ML?CD: 4.00 ML?ED: 1.50 ML
     Route: 050
     Dates: start: 20181016, end: 20181026
  7. PENVASC [Concomitant]
     Indication: HYPERTENSION
     Route: 048
     Dates: start: 2013
  8. DUODOPA [Suspect]
     Active Substance: CARBIDOPA\LEVODOPA
     Dosage: MD: 6.00 ML, CD: 4.00 ML, ED: 1.50 ML
     Route: 050
     Dates: start: 20181026, end: 20181108

REACTIONS (4)
  - Anxiety disorder [Not Recovered/Not Resolved]
  - Stoma site discharge [Not Recovered/Not Resolved]
  - Abdominal pain [Recovered/Resolved]
  - Dyskinesia [Recovered/Resolved]

NARRATIVE: CASE EVENT DATE: 20181020
